FAERS Safety Report 26124317 (Version 1)
Quarter: 2025Q4

REPORT INFORMATION
  Report Type: Spontaneous
  Country: CN (occurrence: CN)
  Receive Date: 20251205
  Receipt Date: 20251205
  Transmission Date: 20260118
  Serious: Yes (Death, Other)
  Sender: SANOFI AVENTIS
  Company Number: CN-DialogSolutions-SAAVPROD-PI848584-C1

PATIENT
  Age: 40 Year
  Sex: Male

DRUGS (21)
  1. ANTI-THYMOCYTE GLOBULIN (RABBIT) NOS [Suspect]
     Active Substance: LAPINE T-LYMPHOCYTE IMMUNE GLOBULIN
     Indication: Acute lymphocytic leukaemia
     Dosage: 2.5 MG/KG, QD ON DAYS - 5 TO - 2
     Dates: start: 2024, end: 2024
  2. FLUDARABINE PHOSPHATE [Suspect]
     Active Substance: FLUDARABINE PHOSPHATE
     Indication: Acute lymphocytic leukaemia
     Dosage: 30 MG/M2 ON DAYS - 6 TO - 2
     Dates: start: 2024, end: 2024
  3. DEXAMETHASONE [Suspect]
     Active Substance: DEXAMETHASONE
     Indication: Acute lymphocytic leukaemia
     Dosage: UNK UNK, QCY, INDUCTION
     Dates: start: 2024, end: 2024
  4. DEXAMETHASONE [Suspect]
     Active Substance: DEXAMETHASONE
     Dosage: CONSOLIDATION
     Dates: start: 2024
  5. CYCLOPHOSPHAMIDE [Suspect]
     Active Substance: CYCLOPHOSPHAMIDE
     Indication: Acute lymphocytic leukaemia
     Dosage: UNK UNK, QCY,INDUCTION
     Dates: start: 2024, end: 2024
  6. CYCLOPHOSPHAMIDE [Suspect]
     Active Substance: CYCLOPHOSPHAMIDE
     Dosage: CONSOLIDATION
     Dates: start: 2024, end: 2024
  7. CYCLOPHOSPHAMIDE [Suspect]
     Active Substance: CYCLOPHOSPHAMIDE
     Dosage: 1 G/M2 ON DAYS - 5 AND - 4
     Dates: start: 2024, end: 2024
  8. VINCRISTINE [Suspect]
     Active Substance: VINCRISTINE
     Indication: Acute lymphocytic leukaemia
     Dosage: UNK UNK, QCY, INDUCTION
     Dates: start: 2024, end: 2024
  9. VINCRISTINE [Suspect]
     Active Substance: VINCRISTINE
     Dosage: UNK, CONSOLIDATION
     Dates: start: 2024
  10. DOXORUBICIN [Suspect]
     Active Substance: DOXORUBICIN
     Indication: Acute lymphocytic leukaemia
     Dosage: UNK UNK, QCY, INDUCTION
     Dates: start: 2024, end: 2024
  11. DOXORUBICIN [Suspect]
     Active Substance: DOXORUBICIN
     Dosage: CONSOLIDATION
     Dates: start: 2024
  12. VENETOCLAX [Suspect]
     Active Substance: VENETOCLAX
     Indication: Acute lymphocytic leukaemia
     Dosage: UNK UNK, QCY, INDUCTION
     Dates: start: 2024, end: 2024
  13. VENETOCLAX [Suspect]
     Active Substance: VENETOCLAX
     Dosage: CONSOLIDATION
     Dates: start: 2024
  14. METHOTREXATE [Suspect]
     Active Substance: METHOTREXATE
     Indication: Acute lymphocytic leukaemia
     Dosage: UNK,CONSOLIDATION
     Dates: start: 2024, end: 2024
  15. METHOTREXATE [Suspect]
     Active Substance: METHOTREXATE
     Indication: Prophylaxis against graft versus host disease
     Dosage: SHORT-COURSE
     Dates: start: 2024
  16. CYTARABINE [Suspect]
     Active Substance: CYTARABINE
     Indication: Acute lymphocytic leukaemia
     Dosage: UNK, CONSOLIDATION
     Dates: start: 2024, end: 2024
  17. CYTARABINE [Suspect]
     Active Substance: CYTARABINE
     Dosage: 4 G/M2 ON DAY -9
     Dates: start: 2024, end: 2024
  18. BUSULFAN [Suspect]
     Active Substance: BUSULFAN
     Indication: Acute lymphocytic leukaemia
     Dosage: 0.8 MG/KG, Q6H, ON DAYS -8, -7, AND - 6
     Dates: start: 2024, end: 2024
  19. SEMUSTINE [Suspect]
     Active Substance: SEMUSTINE
     Indication: Acute lymphocytic leukaemia
     Dosage: 250 MG/M2 ON DAY - 3
     Dates: start: 2024, end: 2024
  20. CYCLOSPORINE [Suspect]
     Active Substance: CYCLOSPORINE
     Indication: Prophylaxis against graft versus host disease
     Dosage: UNK
     Dates: start: 2024
  21. MYCOPHENOLATE MOFETIL [Suspect]
     Active Substance: MYCOPHENOLATE MOFETIL
     Indication: Prophylaxis against graft versus host disease
     Dosage: UNK
     Dates: start: 2024

REACTIONS (6)
  - Disseminated mucormycosis [Fatal]
  - Cardiac failure acute [Recovered/Resolved]
  - Enterococcal infection [Recovered/Resolved]
  - Lung infiltration [Recovered/Resolved]
  - Pyrexia [Recovered/Resolved]
  - Off label use [Unknown]

NARRATIVE: CASE EVENT DATE: 20240101
